FAERS Safety Report 7389668-8 (Version None)
Quarter: 2011Q2

REPORT INFORMATION
  Report Type: 
  Country: None (occurrence: None)
  Receive Date: 20110401
  Receipt Date: 20110324
  Transmission Date: 20111010
  Serious: Yes (Hospitalization)
  Sender: FDA-Public Use
  Company Number: JP-AMGEN-JPNCT2011017267

PATIENT
  Age: 65 Year
  Sex: Male
  Weight: 47 kg

DRUGS (15)
  1. DECADRON [Concomitant]
     Dosage: UNK
     Route: 042
  2. CAMPTOSAR [Suspect]
     Indication: COLORECTAL CANCER
     Route: 041
     Dates: start: 20110303
  3. FLUOROURACIL [Concomitant]
     Indication: COLORECTAL CANCER
     Route: 040
     Dates: start: 20100715, end: 20110302
  4. FLUOROURACIL [Concomitant]
     Route: 040
     Dates: start: 20110303
  5. BESOFTEN CREAM [Concomitant]
     Dosage: UNK
     Route: 062
  6. PANITUMUMAB [Suspect]
     Dosage: 6 MG/KG, Q2WK
     Route: 041
     Dates: start: 20100930
  7. FLUOROURACIL [Concomitant]
     Route: 041
     Dates: start: 20110303
  8. CALCIUM LEVOFOLINATE [Concomitant]
     Indication: COLORECTAL CANCER
     Route: 041
     Dates: start: 20100715, end: 20110302
  9. CALCIUM LEVOFOLINATE [Concomitant]
     Route: 041
     Dates: start: 20110303
  10. KYTRIL [Concomitant]
     Dosage: UNK
     Route: 042
  11. OXALIPLATIN [Concomitant]
     Indication: COLORECTAL CANCER
     Route: 041
     Dates: start: 20100715, end: 20110302
  12. PANITUMUMAB [Suspect]
     Indication: COLORECTAL CANCER
     Dosage: 6 MG/KG, Q2WK
     Route: 041
     Dates: start: 20100715
  13. CALCICOL [Concomitant]
     Dosage: UNK
     Route: 042
  14. MAGNESIUM SULFATE [Concomitant]
     Dosage: UNK
     Route: 042
  15. FLUOROURACIL [Concomitant]
     Route: 041
     Dates: start: 20100715, end: 20110302

REACTIONS (4)
  - INTERSTITIAL LUNG DISEASE [None]
  - HEPATIC FUNCTION ABNORMAL [None]
  - RASH [None]
  - RENAL IMPAIRMENT [None]
